FAERS Safety Report 16040002 (Version 1)
Quarter: 2019Q2

REPORT INFORMATION
  Report Type: Spontaneous
  Country: US (occurrence: US)
  Receive Date: 20190305
  Receipt Date: 20190305
  Transmission Date: 20190711
  Serious: Yes (Hospitalization)
  Sender: FDA-Public Use
  Company Number: None

PATIENT
  Age: 36 Year
  Sex: Female
  Weight: 91.8 kg

DRUGS (2)
  1. LEVAQUIN [Suspect]
     Active Substance: LEVOFLOXACIN
     Indication: KIDNEY INFECTION
     Dosage: ?          QUANTITY:1 TABLET(S);?
     Route: 048
     Dates: start: 20021001, end: 20021002
  2. LEVAQUIN [Suspect]
     Active Substance: LEVOFLOXACIN
     Indication: NEPHROLITHIASIS
     Dosage: ?          QUANTITY:1 TABLET(S);?
     Route: 048
     Dates: start: 20021001, end: 20021002

REACTIONS (3)
  - Hypersensitivity [None]
  - Dyspnoea [None]
  - Vomiting [None]

NARRATIVE: CASE EVENT DATE: 20021001
